FAERS Safety Report 4441431-3 (Version None)
Quarter: 2004Q3

REPORT INFORMATION
  Report Type: 
  Country: None (occurrence: None)
  Receive Date: 20040728
  Receipt Date: 20040329
  Transmission Date: 20050211
  Serious: No
  Sender: FDA-Public Use
  Company Number: USA040363514

PATIENT
  Age: 11 Year
  Sex: Male
  Weight: 52 kg

DRUGS (1)
  1. STRATTERA [Suspect]
     Indication: ATTENTION DEFICIT/HYPERACTIVITY DISORDER
     Dosage: 60 MG DAY
     Dates: start: 20040201

REACTIONS (5)
  - CONVERSION DISORDER [None]
  - DECREASED APPETITE [None]
  - HUNGER [None]
  - MOOD SWINGS [None]
  - SOMNOLENCE [None]
